FAERS Safety Report 5500385-9 (Version None)
Quarter: 2007Q4

REPORT INFORMATION
  Report Type: 
  Country: None (occurrence: None)
  Receive Date: 20071024
  Receipt Date: 20071024
  Transmission Date: 20080405
  Serious: Yes (Hospitalization)
  Sender: FDA-Public Use
  Company Number: None

PATIENT
  Age: 59 Year
  Sex: Male
  Weight: 105.2345 kg

DRUGS (14)
  1. PEG-INTRON [Suspect]
     Indication: HEREDITARY HAEMORRHAGIC TELANGIECTASIA
     Dosage: 96 MCG SQ ONCE WEEKLY
     Route: 058
     Dates: start: 20071021
  2. PEG-INTRON [Concomitant]
  3. ALLEGRA [Concomitant]
  4. FLONASE [Concomitant]
  5. PREVACID [Concomitant]
  6. MULTI-VITAMIN [Concomitant]
  7. ASCORBIC ACID [Concomitant]
  8. FOLIC ACID [Concomitant]
  9. FISH OIL [Concomitant]
  10. POTASSIUM GLUCONATE TAB [Concomitant]
  11. CALTRATE [Concomitant]
  12. VITAMIN D [Concomitant]
  13. ZOLOFT [Concomitant]
  14. FERROUS SULFATE TAB [Concomitant]

REACTIONS (6)
  - GASTRIC ANTRAL VASCULAR ECTASIA [None]
  - GASTRIC ULCER [None]
  - GASTROINTESTINAL HAEMORRHAGE [None]
  - HYPOTENSION [None]
  - INTESTINAL DILATATION [None]
  - NEOVASCULARISATION [None]
